FAERS Safety Report 9529064 (Version 2)
Quarter: 2013Q3

REPORT INFORMATION
  Report Type: Not Available
  Country: US (occurrence: US)
  Receive Date: 20130916
  Receipt Date: 20130916
  Transmission Date: 20140515
  Serious: Yes (Other)
  Sender: FDA-Public Use
  Company Number: US-LUNDBECK-DKLU1087472

PATIENT
  Sex: Female

DRUGS (1)
  1. ONFI [Suspect]
     Indication: LENNOX-GASTAUT SYNDROME
     Dates: start: 20121020

REACTIONS (4)
  - Convulsion [Unknown]
  - Mood altered [Unknown]
  - Irritability [Unknown]
  - Somnolence [Unknown]
